FAERS Safety Report 8612365 (Version 3)
Quarter: 2012Q4

REPORT INFORMATION
  Report Type: 
  Country: US (occurrence: US)
  Receive Date: 20120613
  Receipt Date: 20121018
  Transmission Date: 20130627
  Serious: Yes (Other)
  Sender: FDA-Public Use
  Company Number: US-ASTRAZENECA-2011SE57982

PATIENT
  Age: 50 Year
  Sex: Female
  Weight: 54.4 kg

DRUGS (14)
  1. SEROQUEL [Suspect]
     Indication: BIPOLAR II DISORDER
     Route: 048
  2. SEROQUEL [Suspect]
     Indication: BIPOLAR II DISORDER
     Route: 048
     Dates: start: 201001
  3. SEROQUEL [Suspect]
     Indication: BIPOLAR II DISORDER
     Route: 048
  4. SEROQUEL [Suspect]
     Indication: BIPOLAR II DISORDER
     Route: 048
  5. SEROQUEL [Suspect]
     Indication: BIPOLAR II DISORDER
     Route: 048
  6. LITHIUM [Suspect]
     Route: 065
  7. NEURONTIN [Suspect]
     Route: 065
  8. TRAVINO [Concomitant]
     Indication: BIPOLAR DISORDER
  9. TRAVINO [Concomitant]
     Indication: BIPOLAR DISORDER
  10. DEPAKOTE [Concomitant]
     Indication: BIPOLAR DISORDER
  11. METHADONE [Concomitant]
     Indication: PAIN
  12. PASSION FLOWER ROOT EXTRACT [Concomitant]
  13. VISTARIL [Concomitant]
  14. TRAZIDONE [Concomitant]

REACTIONS (11)
  - Accident [Unknown]
  - Panic attack [Unknown]
  - Anxiety [Unknown]
  - Claustrophobia [Unknown]
  - Psychomotor hyperactivity [Unknown]
  - Mobility decreased [Unknown]
  - Weight increased [Unknown]
  - Feeling abnormal [Unknown]
  - Insomnia [Unknown]
  - Intentional drug misuse [Unknown]
  - Drug ineffective [Unknown]
